FAERS Safety Report 7604089-8 (Version None)
Quarter: 2011Q2

REPORT INFORMATION
  Report Type: 
  Country: None (occurrence: None)
  Receive Date: 20110630
  Receipt Date: 20110617
  Transmission Date: 20111010
  Serious: Yes (Other)
  Sender: FDA-Public Use
  Company Number: 2011AP000237

PATIENT
  Age: 66 Year
  Sex: Male

DRUGS (6)
  1. CITALOPRAM HYDROBROMIDE [Suspect]
     Indication: DEPRESSION
     Dosage: 20 MG, PO
     Route: 048
     Dates: start: 20100924, end: 20110117
  2. METFORMIN HCL [Concomitant]
  3. ZOPICLONE (ZOPICLONE) [Concomitant]
  4. LOPERAMIDE [Concomitant]
  5. INSULIN GLARGINE (INSULIN GLARGINE) [Concomitant]
  6. NOVOLOG [Concomitant]

REACTIONS (2)
  - SOMNAMBULISM [None]
  - MEMORY IMPAIRMENT [None]
